FAERS Safety Report 5113441-4 (Version None)
Quarter: 2006Q3

REPORT INFORMATION
  Report Type: 
  Country: None (occurrence: None)
  Receive Date: 20060920
  Receipt Date: 20060920
  Transmission Date: 20061208
  Serious: Yes (Hospitalization)
  Sender: FDA-Public Use
  Company Number: None

PATIENT
  Age: 52 Year
  Sex: Male
  Weight: 80.7 kg

DRUGS (14)
  1. WARFARIN SODIUM [Suspect]
     Indication: DEEP VEIN THROMBOSIS
     Dosage: 7.5 MG 5X/WK -SUTWRSA- PO  -HOME MED-
     Route: 048
  2. WARFARIN SODIUM [Suspect]
     Indication: PULMONARY EMBOLISM
     Dosage: 7.5 MG 5X/WK -SUTWRSA- PO  -HOME MED-
     Route: 048
  3. WARFARIN SODIUM [Suspect]
     Indication: DEEP VEIN THROMBOSIS
     Dosage: 10MG  2X/WK -MF- PO  -HOME MED-
     Route: 048
  4. WARFARIN SODIUM [Suspect]
     Indication: PULMONARY EMBOLISM
     Dosage: 10MG  2X/WK -MF- PO  -HOME MED-
     Route: 048
  5. ASPIRIN [Concomitant]
  6. ATORVASTATIN [Concomitant]
  7. GLARGINE INSULIN [Concomitant]
  8. LOSARTAN POSTASSIUM [Concomitant]
  9. NIFEDIPINE [Concomitant]
  10. ATENOLOL [Concomitant]
  11. NIASPAN [Concomitant]
  12. MULTIVIT [Concomitant]
  13. ASCORBIC ACID [Concomitant]
  14. FOLIC ACID [Concomitant]

REACTIONS (5)
  - FALL [None]
  - HAEMATOMA [None]
  - INTERNATIONAL NORMALISED RATIO INCREASED [None]
  - OVERDOSE [None]
  - PAIN [None]
